FAERS Safety Report 8040416-8 (Version None)
Quarter: 2012Q1

REPORT INFORMATION
  Report Type: 
  Country: None (occurrence: None)
  Receive Date: 20120111
  Receipt Date: 20111227
  Transmission Date: 20120608
  Serious: No
  Sender: FDA-Public Use
  Company Number: US-AMGEN-USASP2011069117

PATIENT
  Age: 60 Year
  Sex: Female

DRUGS (1)
  1. ENBREL [Suspect]
     Indication: RHEUMATOID ARTHRITIS
     Dosage: 50 MG, QWK
     Dates: start: 20110120, end: 20110801

REACTIONS (9)
  - EPISTAXIS [None]
  - FACIAL PAIN [None]
  - ARTHRITIS [None]
  - SINUSITIS [None]
  - RHINORRHOEA [None]
  - GAIT DISTURBANCE [None]
  - LIGAMENT RUPTURE [None]
  - HEADACHE [None]
  - SINUS DISORDER [None]
